FAERS Safety Report 7204743-6 (Version None)
Quarter: 2010Q4

REPORT INFORMATION
  Report Type: 
  Country: None (occurrence: None)
  Receive Date: 20101230
  Receipt Date: 20101228
  Transmission Date: 20110411
  Serious: Yes (Hospitalization)
  Sender: FDA-Public Use
  Company Number: NL-MEDIMMUNE-MEDI-0011923

PATIENT
  Sex: Male
  Weight: 8.42 kg

DRUGS (3)
  1. SYNAGIS [Suspect]
     Route: 030
     Dates: start: 20101119, end: 20101119
  2. SODIUM CHLORIDE 0.9% [Concomitant]
     Dates: start: 20100101
  3. BECLOMETASONE DIPROPIONATE [Concomitant]
     Dates: start: 20100101

REACTIONS (3)
  - DRUG HYPERSENSITIVITY [None]
  - PNEUMONIA [None]
  - RHINITIS [None]
